FAERS Safety Report 24084048 (Version 1)
Quarter: 2024Q3

REPORT INFORMATION
  Report Type: Spontaneous
  Country: TW (occurrence: TW)
  Receive Date: 20240712
  Receipt Date: 20240712
  Transmission Date: 20241017
  Serious: Yes (Other)
  Sender: ASTELLAS
  Company Number: TW-ASTELLAS-2024US019748

PATIENT
  Sex: Male

DRUGS (2)
  1. PADCEV [Suspect]
     Active Substance: ENFORTUMAB VEDOTIN-EJFV
     Indication: Transitional cell carcinoma metastatic
     Dosage: 1 MG/KG, CYCLIC [D1, D8, D15 EVERY 28 DAYS]
     Route: 065
  2. PADCEV [Suspect]
     Active Substance: ENFORTUMAB VEDOTIN-EJFV
     Dosage: 0.75 MG/KG, CYCLIC [D1, D8, D15 EVERY 28 DAYS]
     Route: 065

REACTIONS (4)
  - Malignant neoplasm progression [Unknown]
  - Neuropathy peripheral [Recovering/Resolving]
  - Underdose [Unknown]
  - Off label use [Unknown]
